FAERS Safety Report 9271428 (Version 1)
Quarter: 2013Q2

REPORT INFORMATION
  Report Type: Spontaneous
  Country: AU (occurrence: AU)
  Receive Date: 20130506
  Receipt Date: 20130506
  Transmission Date: 20140414
  Serious: Yes (Other)
  Sender: FDA-Public Use
  Company Number: PHHY2013AU036250

PATIENT
  Sex: Female

DRUGS (4)
  1. TASIGNA [Suspect]
     Indication: CHRONIC MYELOID LEUKAEMIA
     Dosage: 300 MG, BID
     Route: 048
     Dates: start: 20130321, end: 20130411
  2. PREDNISOLONE [Concomitant]
     Dosage: 25 MG, DAILY
     Route: 048
  3. PARACETAMOL [Concomitant]
     Dosage: 1 G, DAY
     Route: 048
  4. STEROIDS NOS [Concomitant]

REACTIONS (4)
  - Jaundice [Unknown]
  - Liver function test abnormal [Recovered/Resolved]
  - Blood bilirubin increased [Unknown]
  - Fatigue [Unknown]
